FAERS Safety Report 5446525-1 (Version None)
Quarter: 2007Q3

REPORT INFORMATION
  Report Type: 
  Country: None (occurrence: None)
  Receive Date: 20070907
  Receipt Date: 20070829
  Transmission Date: 20080115
  Serious: Yes (Other)
  Sender: FDA-Public Use
  Company Number: GB-ALLERGAN-0709533US

PATIENT
  Sex: Female

DRUGS (2)
  1. DYSPORT [Suspect]
     Indication: EYELID PTOSIS
     Route: 030
  2. DYSPORT [Suspect]
     Dosage: 62.5 PG, UNK
     Route: 030

REACTIONS (4)
  - CORNEAL PERFORATION [None]
  - CORNEAL TRANSPLANT [None]
  - DRUG INEFFECTIVE [None]
  - KERATITIS [None]
